FAERS Safety Report 15743842 (Version 3)
Quarter: 2019Q1

REPORT INFORMATION
  Report Type: Spontaneous
  Country: IT (occurrence: IT)
  Receive Date: 20181220
  Receipt Date: 20190129
  Transmission Date: 20190417
  Serious: Yes (Death)
  Sender: FDA-Public Use
  Company Number: IT-ACTELION-A-CH2018-183794

PATIENT
  Age: 58 Year
  Sex: Female

DRUGS (14)
  1. VENTAVIS [Concomitant]
     Active Substance: ILOPROST
     Indication: PULMONARY ARTERIAL HYPERTENSION
     Dosage: UNK
     Dates: start: 20160613, end: 20181020
  2. PANTOPRAZOLE [Concomitant]
     Active Substance: PANTOPRAZOLE
     Dosage: 40 MG, QD
     Dates: start: 20081201, end: 20181210
  3. RIOCIGUAT. [Concomitant]
     Active Substance: RIOCIGUAT
     Dosage: 7.5 MG, QD
  4. UPTRAVI [Suspect]
     Active Substance: SELEXIPAG
     Indication: PULMONARY ARTERIAL HYPERTENSION
     Dosage: 2000 MCG, QD
     Route: 048
     Dates: end: 20181210
  5. UPTRAVI [Suspect]
     Active Substance: SELEXIPAG
     Dosage: 1400 MCG, UNK
     Route: 048
  6. TORASEMIDE [Concomitant]
     Active Substance: TORSEMIDE
     Dosage: 5 MG, QD
     Dates: start: 20081115, end: 20181210
  7. ACETAZOLAMIDE. [Concomitant]
     Active Substance: ACETAZOLAMIDE
     Dosage: 750 MG, UNK
     Dates: start: 20120301, end: 20181210
  8. POTASSIUM CARBONATE [Concomitant]
     Active Substance: POTASSIUM CARBONATE
     Dosage: 25 MG, UNK
     Dates: start: 20151030, end: 20181210
  9. AMBRISENTAN [Concomitant]
     Active Substance: AMBRISENTAN
     Indication: PULMONARY ARTERIAL HYPERTENSION
     Dosage: 10 MG, QD
     Dates: start: 20081216, end: 20181210
  10. DICUMAROL [Concomitant]
     Active Substance: DICUMAROL
     Dosage: UNK, PRN
     Dates: start: 20081115, end: 20181210
  11. UPTRAVI [Suspect]
     Active Substance: SELEXIPAG
     Dosage: UNK
     Route: 048
     Dates: start: 20181012
  12. ADEMPAS [Concomitant]
     Active Substance: RIOCIGUAT
     Indication: PULMONARY ARTERIAL HYPERTENSION
     Dosage: UNK
     Route: 048
     Dates: start: 20170112, end: 20181210
  13. SILDENAFIL. [Concomitant]
     Active Substance: SILDENAFIL
     Indication: PULMONARY ARTERIAL HYPERTENSION
     Dosage: UNK
     Dates: start: 20081115, end: 20170410
  14. BISOPROLOL [Concomitant]
     Active Substance: BISOPROLOL
     Dosage: 3.75 MG, QD
     Dates: start: 20150920, end: 20181210

REACTIONS (2)
  - Sudden death [Fatal]
  - Chest pain [Fatal]

NARRATIVE: CASE EVENT DATE: 20181210
